FAERS Safety Report 24377254 (Version 5)
Quarter: 2025Q2

REPORT INFORMATION
  Report Type: Report from Study
  Country: US (occurrence: US)
  Receive Date: 20240930
  Receipt Date: 20250617
  Transmission Date: 20250717
  Serious: Yes (Hospitalization, Other)
  Sender: UCB
  Company Number: US-UCBSA-2024043495

PATIENT
  Sex: Male
  Weight: 32.2 kg

DRUGS (10)
  1. FINTEPLA [Suspect]
     Active Substance: FENFLURAMINE
     Indication: Lennox-Gastaut syndrome
     Dosage: 5.1 MILLILITER, 2X/DAY (BID)
     Dates: start: 20240704
  2. FINTEPLA [Suspect]
     Active Substance: FENFLURAMINE
     Dosage: 5.1 MILLILITER, 2X/DAY (BID)
     Dates: start: 20240731, end: 20240924
  3. CLOBAZAM [Concomitant]
     Active Substance: CLOBAZAM
     Indication: Product used for unknown indication
     Dosage: 10 MILLILITER, 2X/DAY (BID)
  4. EPIDIOLEX [Concomitant]
     Active Substance: CANNABIDIOL
     Indication: Product used for unknown indication
     Dosage: 3 MILLILITER, 2X/DAY (BID)
     Route: 048
  5. KLONOPIN [Concomitant]
     Active Substance: CLONAZEPAM
     Indication: Anxiety
  6. KLONOPIN [Concomitant]
     Active Substance: CLONAZEPAM
     Indication: Seizure cluster
  7. VALTOCO [Concomitant]
     Active Substance: DIAZEPAM
     Indication: Seizure
     Route: 045
  8. VALTOCO [Concomitant]
     Active Substance: DIAZEPAM
     Indication: Seizure cluster
  9. GLYCOPYRROLATE [Concomitant]
     Active Substance: GLYCOPYRROLATE
     Indication: Product used for unknown indication
     Dosage: 10 MILLILITER, 3X/DAY (TID) VIA GASTROTOMY TUBE
  10. ZONISADE [Concomitant]
     Active Substance: ZONISAMIDE
     Indication: Partial seizures

REACTIONS (14)
  - Tremor [Recovered/Resolved]
  - Hospitalisation [Recovered/Resolved]
  - Constipation [Not Recovered/Not Resolved]
  - Swelling [Not Recovered/Not Resolved]
  - Muscle twitching [Not Recovered/Not Resolved]
  - Head titubation [Not Recovered/Not Resolved]
  - Insomnia [Not Recovered/Not Resolved]
  - Diarrhoea [Not Recovered/Not Resolved]
  - Eye discharge [Not Recovered/Not Resolved]
  - Arthropathy [Not Recovered/Not Resolved]
  - Crying [Recovered/Resolved]
  - Peripheral swelling [Recovered/Resolved]
  - Somnolence [Recovered/Resolved]
  - Irritability [Unknown]

NARRATIVE: CASE EVENT DATE: 20240101
